FAERS Safety Report 4831637-3 (Version None)
Quarter: 2005Q4

REPORT INFORMATION
  Report Type: 
  Country: None (occurrence: None)
  Receive Date: 20051118
  Receipt Date: 20050803
  Transmission Date: 20060501
  Serious: Yes (Hospitalization)
  Sender: FDA-Public Use
  Company Number: US-MERCK-0508USA01268

PATIENT
  Age: 62 Year
  Sex: Female
  Weight: 91 kg

DRUGS (8)
  1. VIOXX [Suspect]
     Indication: ARTHRITIS
     Route: 048
     Dates: start: 20010901, end: 20031001
  2. PROTONIX [Concomitant]
     Route: 065
  3. LEXAPRO [Concomitant]
     Route: 065
  4. DIOVAN [Concomitant]
     Route: 065
  5. PLAVIX [Concomitant]
     Route: 065
  6. LIPITOR [Concomitant]
     Route: 065
  7. ALPRAZOLAM [Concomitant]
     Route: 065
  8. TYLENOL (CAPLET) [Concomitant]
     Indication: PAIN
     Route: 065

REACTIONS (4)
  - CARDIAC MURMUR [None]
  - CEREBROVASCULAR ACCIDENT [None]
  - HAEMATOCHEZIA [None]
  - HYPERTENSION [None]
